FAERS Safety Report 9829090 (Version 4)
Quarter: 2015Q1

REPORT INFORMATION
  Report Type: Report from Study
  Country: JP (occurrence: JP)
  Receive Date: 20140119
  Receipt Date: 20150316
  Transmission Date: 20150721
  Serious: Yes (Hospitalization, Other)
  Sender: FDA-Public Use
  Company Number: JP-009507513-1401JPN006462

PATIENT
  Age: 79 Year
  Sex: Male
  Weight: 62.5 kg

DRUGS (12)
  1. TOUGHMAC E [Concomitant]
     Active Substance: AMYLASE\LIPASE\PROTEASE
  2. ALINAMIN F (FURSULTIAMINE HYDROCHLORIDE) [Concomitant]
  3. GLACTIV [Suspect]
     Active Substance: SITAGLIPTIN
     Dosage: 75 MG, QD
     Route: 048
     Dates: start: 20110921
  4. CRESTOR [Concomitant]
     Active Substance: ROSUVASTATIN CALCIUM
     Dosage: UNK
     Dates: start: 20120118
  5. NU-LOTAN [Concomitant]
     Active Substance: LOSARTAN POTASSIUM
     Dosage: UNK
     Route: 048
     Dates: end: 20111020
  6. BAYASPIRIN [Concomitant]
     Active Substance: ASPIRIN
  7. EPADEL [Concomitant]
     Active Substance: ICOSAPENT
  8. ACTOS [Concomitant]
     Active Substance: PIOGLITAZONE HYDROCHLORIDE
  9. LIPITOR [Concomitant]
     Active Substance: ATORVASTATIN CALCIUM
     Dosage: UNK
     Dates: end: 20120118
  10. GLACTIV [Suspect]
     Active Substance: SITAGLIPTIN
     Indication: TYPE 2 DIABETES MELLITUS
     Dosage: 25 MG, QD, STRENGTH: 12.5MG,25MG,50MG,100MG.
     Route: 048
     Dates: start: 20110309, end: 20110809
  11. GLACTIV [Suspect]
     Active Substance: SITAGLIPTIN
     Dosage: 50 MG, QD
     Route: 048
     Dates: start: 20110810, end: 20110920
  12. PLETAAL [Concomitant]
     Active Substance: CILOSTAZOL

REACTIONS (4)
  - Dementia [Not Recovered/Not Resolved]
  - Cerebral infarction [Recovered/Resolved]
  - Hyperglycaemia [Recovered/Resolved]
  - Renal impairment [Recovered/Resolved]

NARRATIVE: CASE EVENT DATE: 20111003
